FAERS Safety Report 5113719-4 (Version None)
Quarter: 2006Q3

REPORT INFORMATION
  Report Type: 
  Country: None (occurrence: None)
  Receive Date: 20060921
  Receipt Date: 20060915
  Transmission Date: 20061208
  Serious: No
  Sender: FDA-Public Use
  Company Number: 060164

PATIENT
  Age: 38 Year
  Sex: Male
  Weight: 108.8633 kg

DRUGS (2)
  1. POLYETHYLENE GLYCOL 3350 NF POWDER FOR SOLUTION [Suspect]
     Indication: COLONOSCOPY
     Dates: start: 20060914
  2. POLYETHYLENE GLYCOL 3350 NF POWDER FOR SOLUTION [Suspect]
     Indication: OFF LABEL USE
     Dates: start: 20060914

REACTIONS (1)
  - ANAPHYLACTIC REACTION [None]
